FAERS Safety Report 21218217 (Version 1)
Quarter: 2022Q3

REPORT INFORMATION
  Report Type: Spontaneous
  Country: US (occurrence: None)
  Receive Date: 20220816
  Receipt Date: 20220816
  Transmission Date: 20221027
  Serious: Yes (Hospitalization)
  Sender: FDA-Public Use
  Company Number: None

PATIENT
  Sex: Female

DRUGS (3)
  1. FLUOROURACIL [Suspect]
     Active Substance: FLUOROURACIL
  2. LEUCOVORIN CALCIUM [Concomitant]
     Active Substance: LEUCOVORIN CALCIUM
  3. ELOXATIN [Concomitant]
     Active Substance: OXALIPLATIN

REACTIONS (6)
  - Pleuritic pain [None]
  - Hypotension [None]
  - Pyrexia [None]
  - Tachycardia [None]
  - Hypoxia [None]
  - Infusion related reaction [None]

NARRATIVE: CASE EVENT DATE: 20220804
